FAERS Safety Report 8766273 (Version 1)
Quarter: 2012Q4

REPORT INFORMATION
  Report Type: Report from Study
  Country: US (occurrence: US)
  Receive Date: 20120904
  Receipt Date: 20120904
  Transmission Date: 20130627
  Serious: Yes (Hospitalization, Other)
  Sender: FDA-Public Use
  Company Number: US-ROCHE-1112477

PATIENT
  Age: 76 Year
  Sex: Male

DRUGS (6)
  1. MABTHERA [Suspect]
     Indication: NON-HODGKIN^S LYMPHOMA
     Route: 048
     Dates: start: 201201, end: 20120605
  2. MABTHERA [Suspect]
     Route: 048
     Dates: start: 20120820
  3. CYCLOPHOSPHAMIDE [Concomitant]
     Indication: NON-HODGKIN^S LYMPHOMA
     Route: 042
     Dates: start: 201202, end: 20120605
  4. DOXORUBICIN [Concomitant]
     Indication: NON-HODGKIN^S LYMPHOMA
     Route: 042
     Dates: start: 201202, end: 20120605
  5. VINCRISTINE [Concomitant]
     Indication: NON-HODGKIN^S LYMPHOMA
     Route: 042
     Dates: start: 201202, end: 20120605
  6. PREDNISONE [Concomitant]
     Indication: NON-HODGKIN^S LYMPHOMA
     Route: 042
     Dates: start: 201202, end: 20120605

REACTIONS (2)
  - White blood cell count decreased [Recovered/Resolved]
  - Lymphadenopathy [Recovered/Resolved]
